FAERS Safety Report 8055852-3 (Version None)
Quarter: 2012Q1

REPORT INFORMATION
  Report Type: 
  Country: None (occurrence: None)
  Receive Date: 20120119
  Receipt Date: 20120119
  Transmission Date: 20120608
  Serious: Yes (Hospitalization)
  Sender: FDA-Public Use
  Company Number: None

PATIENT
  Age: 41 Year
  Sex: Female
  Weight: 62.142 kg

DRUGS (1)
  1. COLCRYS [Suspect]
     Indication: FAMILIAL MEDITERRANEAN FEVER
     Dosage: 0.6MG MORNING; 1.2MG EVENINGS
     Route: 048
     Dates: start: 20110215, end: 20120109

REACTIONS (2)
  - MUSCLE SPASMS [None]
  - ABDOMINAL PAIN [None]
